FAERS Safety Report 7328026-9 (Version None)
Quarter: 2011Q1

REPORT INFORMATION
  Report Type: 
  Country: None (occurrence: None)
  Receive Date: 20110225
  Receipt Date: 20110225
  Transmission Date: 20110831
  Serious: Yes (Hospitalization)
  Sender: FDA-Public Use
  Company Number: None

PATIENT
  Sex: Male
  Weight: 89.9 kg

DRUGS (8)
  1. TRAMADOL HCL [Concomitant]
  2. BENAZEPRIL HYDROCHLORIDE [Concomitant]
  3. FINASTERIDE [Concomitant]
  4. AMLODIPINE BESYLATE [Concomitant]
  5. WARFARIN [Concomitant]
  6. LEVAQUIN [Concomitant]
  7. ELIGARD [Concomitant]
  8. REVLIMID [Suspect]
     Indication: PROSTATE CANCER
     Dosage: 25MG QD X 21 PO
     Route: 048

REACTIONS (2)
  - DEHYDRATION [None]
  - BLOOD PRESSURE DECREASED [None]
